FAERS Safety Report 9371582 (Version 1)
Quarter: 2013Q2

REPORT INFORMATION
  Report Type: Spontaneous
  Country: DE (occurrence: DE)
  Receive Date: 20130627
  Receipt Date: 20130627
  Transmission Date: 20140414
  Serious: Yes (Other)
  Sender: FDA-Public Use
  Company Number: DE-MYLANLABS-2013S1013093

PATIENT
  Age: 0 Year
  Sex: Female

DRUGS (2)
  1. LAMOTRIGINE [Suspect]
     Dosage: 400 [MG/D ]/ GESAMTE ZEIT VOLL GESTILLT
     Route: 063
  2. LAMOTRIGINE [Suspect]

REACTIONS (4)
  - Exposure during breast feeding [Unknown]
  - Failure to thrive [Recovered/Resolved]
  - Somnolence [Recovered/Resolved]
  - Feeding disorder [Unknown]
